FAERS Safety Report 14390146 (Version 1)
Quarter: 2018Q1

REPORT INFORMATION
  Report Type: Report from Study
  Country: FR (occurrence: FR)
  Receive Date: 20180116
  Receipt Date: 20180116
  Transmission Date: 20180509
  Serious: Yes (Disabling, Other)
  Sender: FDA-Public Use
  Company Number: FR-AMGEN-FRASL2018004956

PATIENT
  Age: 62 Year
  Sex: Male

DRUGS (2)
  1. REVOLADE [Concomitant]
     Active Substance: ELTROMBOPAG
  2. NPLATE [Suspect]
     Active Substance: ROMIPLOSTIM
     Indication: IMMUNE THROMBOCYTOPENIC PURPURA
     Dosage: EVERY TEN DAYS
     Route: 058
     Dates: start: 201410, end: 201612

REACTIONS (1)
  - Platelet disorder [Recovered/Resolved]

NARRATIVE: CASE EVENT DATE: 2015
